FAERS Safety Report 11310474 (Version 1)
Quarter: 2015Q3

REPORT INFORMATION
  Report Type: Spontaneous
  Country: DE (occurrence: DE)
  Receive Date: 20150724
  Receipt Date: 20150724
  Transmission Date: 20151125
  Serious: Yes (Hospitalization)
  Sender: FDA-Public Use
  Company Number: DE-ABBVIE-15P-062-1429994-00

PATIENT
  Age: 48 Year
  Sex: Male

DRUGS (14)
  1. CARBAMAZEPIN [Suspect]
     Active Substance: CARBAMAZEPINE
     Indication: PROPHYLAXIS
     Route: 048
     Dates: start: 20120224, end: 20120224
  2. CARBAMAZEPIN [Suspect]
     Active Substance: CARBAMAZEPINE
     Route: 048
     Dates: start: 20120225, end: 20120227
  3. CARBAMAZEPIN [Suspect]
     Active Substance: CARBAMAZEPINE
     Route: 050
     Dates: start: 20120228
  4. DIAZEPAM. [Concomitant]
     Active Substance: DIAZEPAM
     Indication: PRODUCT USED FOR UNKNOWN INDICATION
     Route: 048
     Dates: start: 20120224, end: 20120224
  5. SEVREDOL [Concomitant]
     Active Substance: MORPHINE
     Indication: PRODUCT USED FOR UNKNOWN INDICATION
  6. COMBIVIR [Concomitant]
     Active Substance: LAMIVUDINE\ZIDOVUDINE
     Indication: PRODUCT USED FOR UNKNOWN INDICATION
     Dosage: 150MG/300 MG TWICE A DAY
     Route: 048
  7. KALETRA [Suspect]
     Active Substance: LOPINAVIR\RITONAVIR
     Indication: HIV INFECTION
     Dosage: 200/150 MG FOR TIMES A DAY
     Route: 048
  8. COTRIM [Suspect]
     Active Substance: SULFAMETHOXAZOLE\TRIMETHOPRIM
     Indication: PRODUCT USED FOR UNKNOWN INDICATION
     Route: 048
  9. DIAZEPAM. [Concomitant]
     Active Substance: DIAZEPAM
     Route: 048
     Dates: start: 20120229
  10. MORPHINE SULFATE. [Concomitant]
     Active Substance: MORPHINE SULFATE
     Indication: PRODUCT USED FOR UNKNOWN INDICATION
     Route: 048
  11. DIAZEPAM. [Concomitant]
     Active Substance: DIAZEPAM
     Dosage: 30 - 20 MG
     Route: 048
     Dates: start: 20120227, end: 20120228
  12. VIREAD [Concomitant]
     Active Substance: TENOFOVIR DISOPROXIL FUMARATE
     Indication: PRODUCT USED FOR UNKNOWN INDICATION
     Route: 048
  13. PANTOZOL [Suspect]
     Active Substance: PANTOPRAZOLE SODIUM
     Indication: PRODUCT USED FOR UNKNOWN INDICATION
     Route: 065
     Dates: start: 20120226
  14. DIAZEPAM. [Concomitant]
     Active Substance: DIAZEPAM
     Route: 048
     Dates: start: 20120225, end: 20120226

REACTIONS (6)
  - Cholelithiasis [Unknown]
  - Hyponatraemia [Recovering/Resolving]
  - Oedema peripheral [Unknown]
  - Hepatic steatosis [Unknown]
  - Splenomegaly [Unknown]
  - Vertigo [Unknown]

NARRATIVE: CASE EVENT DATE: 20120227
